FAERS Safety Report 8089948-7 (Version None)
Quarter: 2012Q1

REPORT INFORMATION
  Report Type: 
  Country: None (occurrence: None)
  Receive Date: 20120129
  Receipt Date: 20111021
  Transmission Date: 20120608
  Serious: No
  Sender: FDA-Public Use
  Company Number: US-ABBOTT-11P-163-0867392-00

PATIENT
  Age: 41 Year
  Sex: Female

DRUGS (7)
  1. VESICARE [Concomitant]
     Indication: URINARY INCONTINENCE
     Dosage: DAILY
  2. HUMIRA [Suspect]
     Indication: PSORIASIS
     Dates: start: 20110824
  3. FLEXERIL [Concomitant]
     Indication: MUSCLE SPASMS
     Dosage: PRESCRIBED 5MG TID BUT ONLY TAKES 1
  4. OMEPRAZOLE [Concomitant]
     Indication: GASTROOESOPHAGEAL REFLUX DISEASE
  5. ZYRTEC [Concomitant]
     Indication: SEASONAL ALLERGY
     Dosage: DAILY
  6. SUDAFED 12 HOUR [Concomitant]
     Indication: SEASONAL ALLERGY
     Dosage: OVER THE COUNTER DAILY
  7. PHENAZOPYRIDINE HCL TAB [Concomitant]
     Indication: AUTOMATIC BLADDER
     Dosage: 95 MG 2 TABS HS

REACTIONS (1)
  - SINUSITIS [None]
